FAERS Safety Report 9873694 (Version 1)
Quarter: 2014Q1

REPORT INFORMATION
  Report Type: Spontaneous
  Country: US (occurrence: US)
  Receive Date: 20140206
  Receipt Date: 20140206
  Transmission Date: 20141002
  Serious: No
  Sender: FDA-Public Use
  Company Number: US-ACORDA-ACO_34732_2013

PATIENT
  Age: 41 Year
  Sex: Female
  Weight: 84.81 kg

DRUGS (2)
  1. AMPYRA [Suspect]
     Indication: MULTIPLE SCLEROSIS
     Dosage: 10 MG, QD
     Route: 048
     Dates: start: 20130201, end: 201302
  2. AMPYRA [Suspect]
     Indication: FATIGUE
     Dosage: 10 MG, BID
     Route: 048
     Dates: start: 201302

REACTIONS (1)
  - Ocular rosacea [Not Recovered/Not Resolved]
